FAERS Safety Report 5384277-4 (Version None)
Quarter: 2007Q3

REPORT INFORMATION
  Report Type: 
  Country: None (occurrence: None)
  Receive Date: 20070711
  Receipt Date: 20060525
  Transmission Date: 20080115
  Serious: Yes (Other)
  Sender: FDA-Public Use
  Company Number: US-AMGEN-US180167

PATIENT
  Sex: Female

DRUGS (9)
  1. KINERET [Suspect]
     Indication: RHEUMATOID ARTHRITIS
     Route: 058
     Dates: start: 20040601
  2. PREDNISONE [Suspect]
     Route: 048
     Dates: start: 20050501
  3. ATENOLOL [Concomitant]
  4. PROTONIX [Concomitant]
  5. EFFEXOR [Concomitant]
     Dates: start: 20031001
  6. ARTHROTEC [Concomitant]
     Dates: start: 20050101
  7. DARVOCET [Concomitant]
     Dates: start: 20050301
  8. BONIVA [Concomitant]
     Dates: start: 20051101
  9. PREMPRO 14/14 [Concomitant]
     Dates: start: 20060501

REACTIONS (1)
  - WOUND INFECTION STAPHYLOCOCCAL [None]
